FAERS Safety Report 8586645-6 (Version None)
Quarter: 2012Q3

REPORT INFORMATION
  Report Type: 
  Country: None (occurrence: None)
  Receive Date: 20120810
  Receipt Date: 20120808
  Transmission Date: 20120928
  Serious: Yes (Life-Threatening)
  Sender: FDA-Public Use
  Company Number: CN-ASTRAZENECA-2012SE55633

PATIENT

DRUGS (2)
  1. ROPIVACAINE HYDROCHLORIDE [Concomitant]
     Indication: NERVE BLOCK
     Route: 061
  2. LIDOCAINE HYDROCHLORIDE [Suspect]
     Indication: NERVE BLOCK
     Route: 061

REACTIONS (1)
  - TOXICITY TO VARIOUS AGENTS [None]
